FAERS Safety Report 8862320 (Version 1)
Quarter: 2012Q4

REPORT INFORMATION
  Report Type: 
  Country: CA (occurrence: CA)
  Receive Date: 20121026
  Receipt Date: 20121026
  Transmission Date: 20130627
  Serious: Yes (Other)
  Sender: FDA-Public Use
  Company Number: CA-NOVOPROD-348885

PATIENT
  Age: 55 Year
  Sex: Female

DRUGS (6)
  1. VICTOZA [Suspect]
     Indication: PRODUCT USED FOR UNKNOWN INDICATION
     Dosage: 1.2 mg, qd
     Route: 058
     Dates: start: 20111130, end: 201201
  2. CRESTOR [Concomitant]
     Indication: LOW DENSITY LIPOPROTEIN INCREASED
     Dosage: 10 mg, qd
     Route: 048
  3. METFORMIN [Concomitant]
     Indication: TYPE 2 DIABETES MELLITUS
     Dosage: 1000 mg, bid
     Route: 048
  4. COVERSYL                           /00790702/ [Concomitant]
     Indication: HYPERTENSION
     Dosage: 2 mg, qd
     Route: 048
  5. NEXIUM                             /01479302/ [Concomitant]
     Indication: GASTROOESOPHAGEAL REFLUX DISEASE
     Dosage: 40 mg, qd
     Route: 048
  6. NADOLOL [Concomitant]
     Indication: HYPERTENSION
     Dosage: 80 mg, qd
     Route: 048

REACTIONS (1)
  - Tachycardia [Recovered/Resolved]
